FAERS Safety Report 8904303 (Version 3)
Quarter: 2013Q1

REPORT INFORMATION
  Report Type: Report from Study
  Country: UA (occurrence: UA)
  Receive Date: 20121112
  Receipt Date: 20130220
  Transmission Date: 20140127
  Serious: Yes (Hospitalization)
  Sender: FDA-Public Use
  Company Number: UA-GLAXOSMITHKLINE-B0842821A

PATIENT
  Age: 54 Year
  Sex: Male
  Weight: 117 kg

DRUGS (3)
  1. FLUTICASONE FUROATE [Suspect]
     Indication: CHRONIC OBSTRUCTIVE PULMONARY DISEASE
  2. VALSARTAN [Concomitant]
     Indication: HYPERTENSION
     Dosage: 80MG TWICE PER DAY
     Route: 048
     Dates: start: 2012
  3. INDAPAMIDE [Concomitant]
     Indication: HYPERTENSION
     Dosage: 1.5MG PER DAY
     Route: 048
     Dates: start: 2012

REACTIONS (1)
  - Chronic obstructive pulmonary disease [Recovering/Resolving]
